FAERS Safety Report 9441940 (Version 1)
Quarter: 2013Q3

REPORT INFORMATION
  Report Type: Spontaneous
  Country: GB (occurrence: None)
  Receive Date: 20130801
  Receipt Date: 20130801
  Transmission Date: 20140515
  Serious: Yes (Hospitalization)
  Sender: FDA-Public Use
  Company Number: GER/UKI/13/0033245

PATIENT
  Age: 81 Year
  Sex: Female

DRUGS (6)
  1. MONTELUKAST [Suspect]
     Indication: ASTHMA
     Dosage: 10 MG, 1 IN 1 D, PO
     Route: 048
     Dates: start: 20130625, end: 20130703
  2. BENDROFLUMETHIAZIDE (BENDROFLUMETHIAZIDE) [Suspect]
  3. BUDESONIDE AND FORMOTEROL FUMERATE (BUDESONIDE W/ FORMOTEROL FUMARATE) [Suspect]
  4. IRBESARTAN (IRBESARTAN) [Suspect]
  5. SALBUTAMOL (SALBUTAMOL) [Suspect]
  6. WARFARIN (WARFARIN) [Suspect]

REACTIONS (1)
  - Dyspnoea [None]
